FAERS Safety Report 10580173 (Version 2)
Quarter: 2014Q4

REPORT INFORMATION
  Report Type: Spontaneous
  Country: JP (occurrence: JP)
  Receive Date: 20141112
  Receipt Date: 20141112
  Transmission Date: 20150529
  Serious: Yes (Other)
  Sender: FDA-Public Use
  Company Number: JP-PFIZER INC-2014289450

PATIENT
  Age: 60 Year
  Sex: Male

DRUGS (6)
  1. LYRICA [Interacting]
     Active Substance: PREGABALIN
     Indication: PAIN
  2. STRATTERA [Interacting]
     Active Substance: ATOMOXETINE HYDROCHLORIDE
     Dosage: 70 MG, DAILY
     Route: 048
  3. STRATTERA [Interacting]
     Active Substance: ATOMOXETINE HYDROCHLORIDE
     Dosage: 20 MG, DAILY
     Route: 048
  4. STRATTERA [Interacting]
     Active Substance: ATOMOXETINE HYDROCHLORIDE
     Dosage: 100 MG, DAILY
     Route: 048
  5. LYRICA [Suspect]
     Active Substance: PREGABALIN
     Indication: SPINAL PAIN
     Dosage: 75 MG, 2X/DAY, IN THE MORNING AND AFTER DINNER
     Route: 048
  6. PAXIL [Concomitant]
     Active Substance: PAROXETINE HYDROCHLORIDE
     Dosage: UNK

REACTIONS (6)
  - Loss of consciousness [Unknown]
  - Dizziness [Unknown]
  - Drug interaction [Unknown]
  - Eye injury [Unknown]
  - Depressed level of consciousness [Recovered/Resolved]
  - Somnolence [Recovered/Resolved]
